FAERS Safety Report 7118855-9 (Version None)
Quarter: 2010Q4

REPORT INFORMATION
  Report Type: 
  Country: None (occurrence: None)
  Receive Date: 20101123
  Receipt Date: 20100809
  Transmission Date: 20110411
  Serious: No
  Sender: FDA-Public Use
  Company Number: US-KINGPHARMUSA00001-K201001000

PATIENT
  Age: 47 Year
  Sex: Female
  Weight: 70.748 kg

DRUGS (3)
  1. FLECTOR [Suspect]
     Indication: JOINT SPRAIN
     Dosage: 1/2 PATCH APPLIED QD FOR 12 HRS TO LEFT INSIDE WRIST
     Route: 061
     Dates: start: 20100401
  2. FLECTOR [Suspect]
     Indication: LIGAMENT RUPTURE
  3. NEURONTIN [Concomitant]
     Indication: NEUROPATHY PERIPHERAL
     Dosage: 300 MG, UNK

REACTIONS (5)
  - APPLICATION SITE ERYTHEMA [None]
  - APPLICATION SITE EXFOLIATION [None]
  - APPLICATION SITE PAIN [None]
  - APPLICATION SITE RASH [None]
  - APPLICATION SITE VESICLES [None]
